FAERS Safety Report 5642036-9 (Version None)
Quarter: 2008Q1

REPORT INFORMATION
  Report Type: 
  Country: None (occurrence: None)
  Receive Date: 20080225
  Receipt Date: 20080208
  Transmission Date: 20080703
  Serious: Yes (Hospitalization, Other)
  Sender: FDA-Public Use
  Company Number: DSA_31327_2008

PATIENT
  Sex: Female

DRUGS (2)
  1. LORAZEPAM [Suspect]
     Dosage: (20 MG 1X NOT THE PRESCRIBED AMOUNT.  ORAL)
     Route: 048
     Dates: start: 20080112, end: 20080112
  2. DOXYLAMINE SUCCINATE [Suspect]
     Dosage: (NOT THE PRESCRIBED AMOUNT.  ORAL)
     Route: 048
     Dates: start: 20080112, end: 20080112

REACTIONS (7)
  - BLOOD CREATINE PHOSPHOKINASE INCREASED [None]
  - DISORIENTATION [None]
  - DIZZINESS [None]
  - DRUG ABUSE [None]
  - GASTROINTESTINAL SOUNDS ABNORMAL [None]
  - INTENTIONAL OVERDOSE [None]
  - SUICIDE ATTEMPT [None]
